FAERS Safety Report 16071992 (Version 1)
Quarter: 2019Q1

REPORT INFORMATION
  Report Type: Spontaneous
  Country: US (occurrence: US)
  Receive Date: 20190213
  Receipt Date: 20190213
  Transmission Date: 20190418
  Serious: Yes (Hospitalization)
  Sender: FDA-Public Use
  Company Number: None

PATIENT
  Age: 65 Year
  Sex: Female

DRUGS (1)
  1. GLATIRAMER 40MG/ML PFS [Suspect]
     Active Substance: GLATIRAMER
     Indication: MULTIPLE SCLEROSIS
     Dosage: ?          OTHER DOSE:40MG/ 1ML;?
     Route: 058

REACTIONS (6)
  - Fall [None]
  - Influenza [None]
  - Spinal fracture [None]
  - Concussion [None]
  - Oedema peripheral [None]
  - Peripheral swelling [None]

NARRATIVE: CASE EVENT DATE: 20181001
